FAERS Safety Report 12977280 (Version 2)
Quarter: 2017Q2

REPORT INFORMATION
  Report Type: Spontaneous
  Country: US (occurrence: US)
  Receive Date: 20161128
  Receipt Date: 20170425
  Transmission Date: 20170830
  Serious: Yes (Other)
  Sender: FDA-Public Use
  Company Number: US-ACCORD-046029

PATIENT
  Age: 62 Year
  Sex: Male

DRUGS (1)
  1. CLOZAPINE. [Suspect]
     Active Substance: CLOZAPINE
     Indication: SCHIZOAFFECTIVE DISORDER
     Dosage: ADMINISTRATION WAS CONSOLIDATED TO A SINGLE EVENING DOSE (300 MG/DAY).?TITRATED TO 300-500 MG

REACTIONS (5)
  - Hypotension [Recovered/Resolved]
  - Sedation [Unknown]
  - Treatment noncompliance [Recovered/Resolved]
  - Tachycardia [Recovered/Resolved]
  - Salivary hypersecretion [Recovered/Resolved]
